FAERS Safety Report 10174147 (Version 1)
Quarter: 2014Q2

REPORT INFORMATION
  Report Type: Spontaneous
  Country: BR (occurrence: BR)
  Receive Date: 20140515
  Receipt Date: 20140515
  Transmission Date: 20141212
  Serious: Yes (Death, Hospitalization)
  Sender: FDA-Public Use
  Company Number: BR-ASTRAZENECA-2014SE32861

PATIENT
  Age: 66 Year
  Sex: Male

DRUGS (5)
  1. VANNAIR [Suspect]
     Indication: EMPHYSEMA
     Dosage: 160/4.5MCG, UNKNOWN FREQUENCY
     Route: 055
     Dates: start: 2012
  2. OMEPRAZOLE [Suspect]
     Route: 048
     Dates: start: 2012
  3. SPIRIVA [Concomitant]
     Dates: start: 2012
  4. RISPERIDONE [Concomitant]
     Dates: start: 2012
  5. PAROXETINE HYDROCHLORIDE [Concomitant]
     Dates: start: 2012

REACTIONS (3)
  - Fatigue [Unknown]
  - Cardiac arrest [Fatal]
  - Product used for unknown indication [Not Recovered/Not Resolved]
